FAERS Safety Report 19972095 (Version 1)
Quarter: 2021Q4

REPORT INFORMATION
  Report Type: Spontaneous
  Country: DE (occurrence: DE)
  Receive Date: 20211019
  Receipt Date: 20211019
  Transmission Date: 20220303
  Serious: Yes (Life-Threatening, Other)
  Sender: FDA-Public Use
  Company Number: None

PATIENT
  Age: 30 Year
  Sex: Male
  Weight: 117 kg

DRUGS (11)
  1. ARIXTRA [Suspect]
     Active Substance: FONDAPARINUX SODIUM
     Indication: Thrombosis prophylaxis
     Dosage: EINMAL T?GLICH
     Route: 058
     Dates: start: 20210505, end: 20210625
  2. OXYCODONE [Concomitant]
     Active Substance: OXYCODONE
     Indication: Analgesic therapy
     Dosage: 20 MILLIGRAM
     Route: 048
     Dates: start: 20210505, end: 20210625
  3. CHOLECALCIFEROL [Concomitant]
     Active Substance: CHOLECALCIFEROL
     Indication: Osteoporosis
     Dosage: 20000 INTERNATIONAL UNIT, QW
     Route: 048
     Dates: start: 20210505, end: 20210625
  4. ZOPICLONE [Concomitant]
     Active Substance: ZOPICLONE
     Indication: Sedation
     Dosage: 7500 MICROGRAM, QD
     Route: 048
     Dates: start: 20210505, end: 20210625
  5. IBUPROFEN [Concomitant]
     Active Substance: IBUPROFEN
     Indication: Analgesic therapy
     Dosage: 600 MILLIGRAM, Q6H
     Route: 048
     Dates: start: 20210505, end: 20210625
  6. VICTOZA [Concomitant]
     Active Substance: LIRAGLUTIDE
     Indication: Type 2 diabetes mellitus
     Dosage: 1.2 MILLIGRAM, QD
     Route: 058
     Dates: start: 20210505, end: 20210625
  7. MEGALAC ALMASILAT [Concomitant]
     Indication: Gastrooesophageal reflux disease
     Dosage: UNK UNK, PRN (BEI BEDARF )
     Route: 048
     Dates: start: 20210505, end: 20210625
  8. METAMIZOLE [Concomitant]
     Active Substance: METAMIZOLE
     Indication: Analgesic therapy
     Dosage: UNK UNK, PRN (BEI BEDARF BIS 4 MAL T?GLICH 1 TABLETTE)
     Route: 048
     Dates: start: 20210505, end: 20210625
  9. LIORESAL [Concomitant]
     Active Substance: BACLOFEN
     Indication: Muscle spasms
     Dosage: 20 MILLIGRAM, QD (1-0-1-0)
     Route: 048
     Dates: start: 20210505, end: 20210625
  10. MOVICOL [Concomitant]
     Active Substance: POLYETHYLENE GLYCOL 3350\POTASSIUM CHLORIDE\SODIUM BICARBONATE\SODIUM CHLORIDE
     Indication: Constipation
     Dosage: 1 DOSAGE FORM, QD
     Route: 048
     Dates: start: 202105, end: 20210625
  11. PANTOPRAZOLE [Concomitant]
     Active Substance: PANTOPRAZOLE
     Indication: Gastritis prophylaxis
     Dosage: 40 MILLIGRAM, QD
     Route: 048
     Dates: start: 20210505, end: 20210625

REACTIONS (1)
  - Deep vein thrombosis [Recovering/Resolving]

NARRATIVE: CASE EVENT DATE: 20210621
